FAERS Safety Report 10233383 (Version 1)
Quarter: 2014Q2

REPORT INFORMATION
  Report Type: Spontaneous
  Country: KR (occurrence: KR)
  Receive Date: 20140612
  Receipt Date: 20140612
  Transmission Date: 20141212
  Serious: Yes (Hospitalization)
  Sender: FDA-Public Use
  Company Number: KR-MYLANLABS-2014S1013513

PATIENT
  Age: 35 Year
  Sex: Male

DRUGS (2)
  1. FINASTERIDE [Suspect]
     Indication: ANDROGENETIC ALOPECIA
     Dosage: 1 MG/DAY
     Route: 065
  2. FINASTERIDE [Suspect]
     Dosage: 1 MG/DAY
     Route: 065

REACTIONS (2)
  - Myopathy [Recovered/Resolved]
  - Ophthalmoplegia [Recovered/Resolved]
